FAERS Safety Report 4652425-7 (Version None)
Quarter: 2005Q2

REPORT INFORMATION
  Report Type: 
  Country: None (occurrence: None)
  Receive Date: 20050502
  Receipt Date: 20050425
  Transmission Date: 20051028
  Serious: Yes (Death)
  Sender: FDA-Public Use
  Company Number: 04-12-1777

PATIENT
  Age: 48 Year
  Sex: Female
  Weight: 97.0698 kg

DRUGS (2)
  1. CLOZAPINE [Suspect]
     Indication: SCHIZOPHRENIA, PARANOID TYPE
     Dosage: 700MG QD ORAL
     Route: 048
     Dates: start: 19991001, end: 20041101
  2. PAXIL CR [Concomitant]

REACTIONS (2)
  - ACCIDENTAL DEATH [None]
  - DRUG TOXICITY [None]
